FAERS Safety Report 4630844-2 (Version None)
Quarter: 2005Q1

REPORT INFORMATION
  Report Type: 
  Country: None (occurrence: None)
  Receive Date: 20050331
  Receipt Date: 20050331
  Transmission Date: 20050727
  Serious: No
  Sender: FDA-Public Use
  Company Number: None

PATIENT
  Age: 10 Year
  Sex: Male

DRUGS (2)
  1. CANDIDA ALBICANS 1:1,000 - GREER LABS., INC. [Suspect]
     Indication: SKIN PAPILLOMA
     Dosage: 0.1 CC @ [50%] INTRA-LESIONAL
     Route: 026
     Dates: start: 20041122
  2. CANDIDA ALBICANS 1:1,000 - GREER LABS., INC. [Suspect]
     Indication: SKIN PAPILLOMA
     Dosage: 0.1 CC @ [50%] INTRA-LESIONAL
     Route: 026
     Dates: start: 20041222

REACTIONS (5)
  - LYMPHOMATOID PAPULOSIS [None]
  - OFF LABEL USE [None]
  - RASH [None]
  - SALIVARY DUCT OBSTRUCTION [None]
  - SKIN LESION [None]
